FAERS Safety Report 8509735-2 (Version None)
Quarter: 2012Q3

REPORT INFORMATION
  Report Type: 
  Country: None (occurrence: None)
  Receive Date: 20120713
  Receipt Date: 20120713
  Transmission Date: 20120928
  Serious: Yes (Death, Hospitalization)
  Sender: FDA-Public Use
  Company Number: AU-B.I. PHARMACEUTICALS,INC./RIDGEFIELD-2012-AU-01251AU

PATIENT
  Sex: Female

DRUGS (14)
  1. PRADAXA [Suspect]
     Indication: CEREBROVASCULAR ACCIDENT PROPHYLAXIS
     Dates: start: 20110912
  2. BLACKMORES LUTEIN-VISION [Concomitant]
  3. LANOXIN [Concomitant]
  4. VALIUM [Concomitant]
  5. PANADOL OSTEO [Concomitant]
  6. MODURETIC 5-50 [Concomitant]
  7. LIPITOR [Concomitant]
  8. OSTELIN [Concomitant]
  9. PAROXETINE HCL [Concomitant]
  10. BLACKMORES MACU VISION [Concomitant]
  11. METOPROLOL TARTRATE [Concomitant]
  12. TEVETEN HCT [Concomitant]
  13. ANTISTINE-PRIVINE [Concomitant]
  14. PRADAXA [Suspect]
     Indication: ATRIAL FIBRILLATION

REACTIONS (1)
  - CEREBELLAR INFARCTION [None]
